FAERS Safety Report 12864322 (Version 1)
Quarter: 2016Q4

REPORT INFORMATION
  Report Type: Report from Study
  Country: US (occurrence: US)
  Receive Date: 20161020
  Receipt Date: 20161020
  Transmission Date: 20170207
  Serious: Yes (Hospitalization)
  Sender: FDA-Public Use
  Company Number: US-ROCHE-1554864

PATIENT
  Age: 59 Year
  Sex: Female
  Weight: 77.8 kg

DRUGS (22)
  1. TYLENOL EXTRA STRENGTH [Concomitant]
     Active Substance: ACETAMINOPHEN
     Indication: ARTHRITIS
     Route: 065
     Dates: start: 20141014
  2. TYLENOL EXTRA STRENGTH [Concomitant]
     Active Substance: ACETAMINOPHEN
     Indication: PYREXIA
     Route: 065
     Dates: start: 20150215, end: 20150221
  3. FAMOTIDINE. [Concomitant]
     Active Substance: FAMOTIDINE
     Route: 065
     Dates: start: 20150318, end: 20150318
  4. DOCUSATE SODIUM. [Concomitant]
     Active Substance: DOCUSATE SODIUM
     Indication: CONSTIPATION
     Route: 065
     Dates: start: 20141122
  5. TYLENOL EXTRA STRENGTH [Concomitant]
     Active Substance: ACETAMINOPHEN
     Indication: HEADACHE
  6. FAMOTIDINE. [Concomitant]
     Active Substance: FAMOTIDINE
     Indication: PREMEDICATION
     Route: 065
     Dates: start: 20150225, end: 20150225
  7. ENOXAPARIN SODIUM. [Concomitant]
     Active Substance: ENOXAPARIN SODIUM
     Indication: THROMBOSIS PROPHYLAXIS
     Route: 065
     Dates: start: 20150320, end: 20150320
  8. PROCHLORPERAZINE. [Concomitant]
     Active Substance: PROCHLORPERAZINE
     Indication: NAUSEA
     Route: 065
     Dates: start: 20150319, end: 20150319
  9. CLARITIN (UNITED STATES) [Concomitant]
     Indication: ALLERGY PROPHYLAXIS
     Route: 065
     Dates: start: 20150116, end: 20150319
  10. ATEZOLIZUMAB [Suspect]
     Active Substance: ATEZOLIZUMAB
     Indication: B-CELL LYMPHOMA RECURRENT
     Dosage: MOST RECENT DOSE PRIOR TO THE EVENT: 18/MAR/2015
     Route: 042
     Dates: start: 20150204
  11. OBINUTUZUMAB [Suspect]
     Active Substance: OBINUTUZUMAB
     Indication: B-CELL LYMPHOMA RECURRENT
     Dosage: MOST RECENT DOSE PRIOR TO THE EVENT: 18/MAR/2015
     Route: 042
     Dates: start: 20150114
  12. ACETAMINOPHEN. [Concomitant]
     Active Substance: ACETAMINOPHEN
     Route: 065
     Dates: start: 20150318, end: 20150318
  13. LORAZEPAM. [Concomitant]
     Active Substance: LORAZEPAM
     Indication: PREMEDICATION
     Route: 065
     Dates: start: 20150225, end: 20150225
  14. OSELTAMIVIR [Concomitant]
     Active Substance: OSELTAMIVIR
     Indication: OROPHARYNGEAL PAIN
     Route: 065
     Dates: start: 20150215, end: 20150221
  15. ACETAMINOPHEN. [Concomitant]
     Active Substance: ACETAMINOPHEN
     Indication: PREMEDICATION
     Route: 065
     Dates: start: 20150225, end: 20150225
  16. ALLOPURINOL. [Concomitant]
     Active Substance: ALLOPURINOL
     Indication: PROPHYLAXIS
     Route: 065
     Dates: start: 20150116
  17. LORAZEPAM. [Concomitant]
     Active Substance: LORAZEPAM
     Indication: ANXIETY
     Route: 065
     Dates: start: 20150318, end: 20150318
  18. GAS-X EXTRA STRENGTH [Concomitant]
     Active Substance: DIMETHICONE
     Indication: ABDOMINAL DISCOMFORT
     Route: 065
     Dates: start: 20141217
  19. MIRALAX [Concomitant]
     Active Substance: POLYETHYLENE GLYCOL 3350
     Indication: CONSTIPATION
     Route: 065
     Dates: start: 20150225
  20. TYLENOL EXTRA STRENGTH [Concomitant]
     Active Substance: ACETAMINOPHEN
     Indication: PAIN
  21. LORAZEPAM. [Concomitant]
     Active Substance: LORAZEPAM
     Route: 065
     Dates: start: 20150319, end: 20150319
  22. PROCHLORPERAZINE. [Concomitant]
     Active Substance: PROCHLORPERAZINE
     Indication: VOMITING

REACTIONS (1)
  - Ileus [Recovered/Resolved]

NARRATIVE: CASE EVENT DATE: 20150319
